FAERS Safety Report 8483490-7 (Version None)
Quarter: 2012Q3

REPORT INFORMATION
  Report Type: 
  Country: None (occurrence: None)
  Receive Date: 20120702
  Receipt Date: 20120624
  Transmission Date: 20120928
  Serious: Yes (Other)
  Sender: FDA-Public Use
  Company Number: TR-FRI-1000036773

PATIENT
  Age: 92 Year
  Sex: Female

DRUGS (5)
  1. MEMANTINE HCL [Suspect]
     Indication: PRODUCT USED FOR UNKNOWN INDICATION
     Dosage: 5 MG
     Route: 048
     Dates: start: 20120620
  2. DESYREL [Concomitant]
  3. ESCITALOPRAM [Suspect]
     Indication: PRODUCT USED FOR UNKNOWN INDICATION
     Dosage: 5 MG
     Route: 048
     Dates: start: 20120620
  4. SERTRALINE HYDROCHLORIDE [Concomitant]
  5. XANAX [Concomitant]

REACTIONS (2)
  - DIABETES INSIPIDUS [None]
  - FALL [None]
